FAERS Safety Report 19862116 (Version 1)
Quarter: 2021Q3

REPORT INFORMATION
  Report Type: Spontaneous
  Country: US (occurrence: US)
  Receive Date: 20210920
  Receipt Date: 20210920
  Transmission Date: 20211014
  Serious: No
  Sender: FDA-Public Use
  Company Number: US-JNJFOC-20210919332

PATIENT
  Age: 68 Year
  Sex: Female

DRUGS (2)
  1. SIMPONI ARIA [Suspect]
     Active Substance: GOLIMUMAB
     Indication: PSORIATIC ARTHROPATHY
     Dosage: MOST RECENT 4 WEEK DOSE: 17?JUN?2021 AND 15?JUL?2021
     Route: 042
     Dates: start: 202101
  2. SIMPONI ARIA [Suspect]
     Active Substance: GOLIMUMAB
     Route: 042
     Dates: start: 2018

REACTIONS (4)
  - Off label use [Unknown]
  - Neutralising antibodies [Unknown]
  - Inappropriate schedule of product administration [Unknown]
  - Product dose omission issue [Unknown]

NARRATIVE: CASE EVENT DATE: 2018
